FAERS Safety Report 5093277-3 (Version None)
Quarter: 2006Q3

REPORT INFORMATION
  Report Type: 
  Country: None (occurrence: None)
  Receive Date: 20060829
  Receipt Date: 20060829
  Transmission Date: 20061208
  Serious: No
  Sender: FDA-Public Use
  Company Number: None

PATIENT
  Age: 53 Year
  Sex: Female
  Weight: 97 kg

DRUGS (1)
  1. PACLITAXEL [Suspect]
     Indication: ENDOMETRIAL CANCER METASTATIC
     Dosage: 330 MG TOTAL  IVPB
     Route: 040
     Dates: start: 20060620

REACTIONS (5)
  - CHEST DISCOMFORT [None]
  - FLUSHING [None]
  - INFUSION RELATED REACTION [None]
  - NAUSEA [None]
  - VOMITING [None]
